FAERS Safety Report 22314806 (Version 1)
Quarter: 2023Q2

REPORT INFORMATION
  Report Type: Spontaneous
  Country: US (occurrence: None)
  Receive Date: 20230511
  Receipt Date: 20230511
  Transmission Date: 20230721
  Serious: Yes (Life-Threatening, Hospitalization)
  Sender: FDA-Public Use
  Company Number: None

PATIENT
  Age: 63 Year
  Sex: Female
  Weight: 78.3 kg

DRUGS (4)
  1. MOUNJARO [Suspect]
     Active Substance: TIRZEPATIDE
     Indication: Glycosylated haemoglobin decreased
     Dosage: OTHER FREQUENCY : ONCE WEEK;?
     Route: 058
     Dates: end: 20230427
  2. MORPHINE [Concomitant]
     Active Substance: MORPHINE
  3. TIZANIDINE [Concomitant]
     Active Substance: TIZANIDINE
  4. VITAMINS [Concomitant]
     Active Substance: VITAMINS

REACTIONS (3)
  - Chest pain [None]
  - Coronary artery stenosis [None]
  - Product communication issue [None]

NARRATIVE: CASE EVENT DATE: 20230428
